FAERS Safety Report 18554175 (Version 10)
Quarter: 2022Q3

REPORT INFORMATION
  Report Type: Report from Study
  Country: CO (occurrence: CO)
  Receive Date: 20201127
  Receipt Date: 20220831
  Transmission Date: 20221027
  Serious: Yes (Other)
  Sender: FDA-Public Use
  Company Number: CO-ABBVIE-20K-036-3612730-00

PATIENT
  Sex: Female
  Weight: 75 kg

DRUGS (8)
  1. HUMIRA [Suspect]
     Active Substance: ADALIMUMAB
     Indication: Colitis ulcerative
     Route: 058
     Dates: start: 20170725
  2. HUMIRA [Suspect]
     Active Substance: ADALIMUMAB
     Indication: Colitis ulcerative
     Route: 058
     Dates: end: 20200920
  3. HUMIRA [Suspect]
     Active Substance: ADALIMUMAB
     Route: 058
     Dates: end: 202101
  4. HUMIRA [Suspect]
     Active Substance: ADALIMUMAB
     Route: 058
     Dates: start: 20210125, end: 2021
  5. HUMIRA [Suspect]
     Active Substance: ADALIMUMAB
     Route: 058
     Dates: start: 2021, end: 20210817
  6. HUMIRA [Suspect]
     Active Substance: ADALIMUMAB
     Route: 058
  7. HUMIRA [Suspect]
     Active Substance: ADALIMUMAB
     Route: 058
  8. HUMIRA [Suspect]
     Active Substance: ADALIMUMAB
     Route: 058
     Dates: end: 20220809

REACTIONS (15)
  - Ovarian cyst [Not Recovered/Not Resolved]
  - Gastrointestinal necrosis [Not Recovered/Not Resolved]
  - Intestinal obstruction [Unknown]
  - Hernia [Not Recovered/Not Resolved]
  - Chills [Recovered/Resolved]
  - Oral mucosal blistering [Not Recovered/Not Resolved]
  - Overweight [Recovering/Resolving]
  - Chills [Recovered/Resolved]
  - Gastrointestinal disorder [Unknown]
  - Gastrointestinal disorder [Recovering/Resolving]
  - Blindness [Not Recovered/Not Resolved]
  - Nephrolithiasis [Not Recovered/Not Resolved]
  - Influenza like illness [Recovered/Resolved]
  - Colitis ulcerative [Unknown]
  - Discomfort [Unknown]

NARRATIVE: CASE EVENT DATE: 20200101
